FAERS Safety Report 18575786 (Version 1)
Quarter: 2020Q4

REPORT INFORMATION
  Report Type: Spontaneous
  Country: US (occurrence: US)
  Receive Date: 20201203
  Receipt Date: 20201203
  Transmission Date: 20210114
  Serious: Yes (Death)
  Sender: FDA-Public Use
  Company Number: US-PURDUE-USA-2020-0166638

PATIENT
  Sex: Female

DRUGS (2)
  1. OXYCONTIN [Suspect]
     Active Substance: OXYCODONE HYDROCHLORIDE
     Indication: PRODUCT USED FOR UNKNOWN INDICATION
     Dosage: UNK
     Route: 048
  2. DILAUDID [Suspect]
     Active Substance: HYDROMORPHONE HYDROCHLORIDE
     Indication: PRODUCT USED FOR UNKNOWN INDICATION
     Dosage: UNK
     Route: 048

REACTIONS (11)
  - Vision blurred [Unknown]
  - Fall [Unknown]
  - Constipation [Unknown]
  - Depression [Unknown]
  - Weight increased [Unknown]
  - Blood pressure fluctuation [Unknown]
  - Death [Fatal]
  - Amnesia [Unknown]
  - Dyspnoea [Unknown]
  - Headache [Unknown]
  - Sleep disorder [Unknown]
